FAERS Safety Report 5261891-8 (Version None)
Quarter: 2007Q1

REPORT INFORMATION
  Report Type: 
  Country: None (occurrence: None)
  Receive Date: 20070310
  Receipt Date: 20070228
  Transmission Date: 20070707
  Serious: Yes (Other)
  Sender: FDA-Public Use
  Company Number: 2006UW03014

PATIENT
  Age: 52 Year
  Sex: Male
  Weight: 115.5 kg

DRUGS (3)
  1. SEROQUEL [Suspect]
     Indication: DEPRESSION
     Route: 048
     Dates: start: 20020101
  2. REMERON [Concomitant]
     Dates: start: 20050101
  3. LEXOPRO [Concomitant]
     Dates: start: 20050101

REACTIONS (4)
  - BLOOD TRIGLYCERIDES INCREASED [None]
  - INSULIN-REQUIRING TYPE II DIABETES MELLITUS [None]
  - PANCREATITIS [None]
  - WEIGHT INCREASED [None]
